FAERS Safety Report 11231105 (Version 3)
Quarter: 2015Q3

REPORT INFORMATION
  Report Type: Spontaneous
  Country: US (occurrence: US)
  Receive Date: 20150701
  Receipt Date: 20150811
  Transmission Date: 20151125
  Serious: Yes (Other)
  Sender: FDA-Public Use
  Company Number: US-ASTRAZENECA-2014SE76340

PATIENT
  Age: 23787 Day
  Sex: Male
  Weight: 87.1 kg

DRUGS (13)
  1. BYETTA [Suspect]
     Active Substance: EXENATIDE
     Route: 065
     Dates: start: 20091201, end: 20100331
  2. PRILOSEC [Concomitant]
     Active Substance: OMEPRAZOLE MAGNESIUM
     Route: 065
     Dates: start: 20121216
  3. METFORMIN [Concomitant]
     Active Substance: METFORMIN HYDROCHLORIDE
     Route: 065
  4. DIFLUCAN [Concomitant]
     Active Substance: FLUCONAZOLE
     Route: 065
  5. ASPIRIN. [Concomitant]
     Active Substance: ASPIRIN
     Route: 065
  6. GLIMEPIRIDE. [Concomitant]
     Active Substance: GLIMEPIRIDE
     Route: 048
  7. PANTOPRAZOLE SODIUM. [Concomitant]
     Active Substance: PANTOPRAZOLE SODIUM
     Dates: start: 20121128
  8. FISH OIL [Concomitant]
     Active Substance: FISH OIL
     Route: 065
  9. METOCLOPRAMID [Concomitant]
     Active Substance: METOCLOPRAMIDE
     Dates: start: 20121128
  10. CRESTOR [Concomitant]
     Active Substance: ROSUVASTATIN CALCIUM
     Route: 065
  11. NIASPAN [Concomitant]
     Active Substance: NIACIN
     Route: 065
  12. AMOX TR-K CLV [Concomitant]
     Active Substance: AMOXICILLIN\CLAVULANATE POTASSIUM
     Dosage: B75-125 MG TAB
     Dates: start: 20121011
  13. LISINOPRIL. [Concomitant]
     Active Substance: LISINOPRIL
     Route: 048

REACTIONS (4)
  - Pancreatitis chronic [Unknown]
  - Adenocarcinoma pancreas [Unknown]
  - Jaundice [Unknown]
  - Skin cancer [Unknown]

NARRATIVE: CASE EVENT DATE: 20121004
